FAERS Safety Report 22075133 (Version 1)
Quarter: 2023Q1

REPORT INFORMATION
  Report Type: Spontaneous
  Country: US (occurrence: None)
  Receive Date: 20230308
  Receipt Date: 20230308
  Transmission Date: 20230418
  Serious: Yes (Hospitalization)
  Sender: FDA-Public Use
  Company Number: None

PATIENT
  Age: 14 Year
  Sex: Male
  Weight: 47.8 kg

DRUGS (1)
  1. TISAGENLECLEUCEL [Suspect]
     Active Substance: TISAGENLECLEUCEL
     Indication: Acute lymphocytic leukaemia
     Dosage: FREQUENCY : ONCE;?
     Route: 042
     Dates: start: 20230118, end: 20230118

REACTIONS (2)
  - Cytokine release syndrome [None]
  - Leg amputation [None]

NARRATIVE: CASE EVENT DATE: 20230118
